FAERS Safety Report 26076013 (Version 1)
Quarter: 2025Q4

REPORT INFORMATION
  Report Type: Spontaneous
  Country: TR (occurrence: TR)
  Receive Date: 20251121
  Receipt Date: 20251121
  Transmission Date: 20260117
  Serious: Yes (Death, Life-Threatening, Other)
  Sender: SANOFI AVENTIS
  Company Number: TR-SA-2017SA258325

PATIENT
  Age: 54 Year
  Sex: Male

DRUGS (13)
  1. MYCOPHENOLATE MOFETIL [Suspect]
     Active Substance: MYCOPHENOLATE MOFETIL
     Indication: Immunosuppression
     Dosage: 2 G,QD
     Dates: start: 2013
  2. PREDNISOLONE [Suspect]
     Active Substance: PREDNISOLONE
     Indication: Immunosuppression
     Dosage: 1000 MG,UNK
     Route: 065
     Dates: start: 20130823, end: 20130830
  3. PREDNISOLONE [Suspect]
     Active Substance: PREDNISOLONE
     Dosage: UNK, QD
  4. PREDNISOLONE [Suspect]
     Active Substance: PREDNISOLONE
     Dosage: 20 MG,QD
     Dates: start: 20130830, end: 2014
  5. PREDNISOLONE [Suspect]
     Active Substance: PREDNISOLONE
     Dosage: 10 MG,QD
     Dates: start: 2014
  6. ANTI-THYMOCYTE GLOBULIN (RABBIT) NOS [Suspect]
     Active Substance: LAPINE T-LYMPHOCYTE IMMUNE GLOBULIN
     Indication: Immunosuppression
     Dosage: 2.5 MG/KG,QD
     Dates: start: 20130823
  7. PROGRAF [Suspect]
     Active Substance: TACROLIMUS
     Indication: Immunosuppression
     Dosage: .2 MG/KG,QD
     Dates: start: 2013
  8. PROGRAF [Suspect]
     Active Substance: TACROLIMUS
     Dosage: TAPERED TO 7?10 NG/ML 6 MONTHS POSTOPERATIVELY
  9. HEPARIN [Concomitant]
     Active Substance: HEPARIN SODIUM
     Indication: Prophylaxis
     Dosage: UNK
     Route: 058
     Dates: start: 2013
  10. PYRIMETHAMINE\SULFADOXINE [Concomitant]
     Active Substance: PYRIMETHAMINE\SULFADOXINE
     Indication: Prophylaxis
     Dosage: UNK
     Dates: start: 2013
  11. VALACYCLOVIR HYDROCHLORIDE [Concomitant]
     Active Substance: VALACYCLOVIR HYDROCHLORIDE
     Indication: Prophylaxis
     Dosage: UNK
     Route: 048
     Dates: start: 2013
  12. TACROLIMUS [Concomitant]
     Active Substance: TACROLIMUS
     Indication: Skin graft rejection
     Dosage: UNK
     Dates: start: 2013
  13. NYSTATIN [Concomitant]
     Active Substance: NYSTATIN
     Indication: Prophylaxis
     Dosage: UNK
     Route: 048
     Dates: start: 2013

REACTIONS (4)
  - Squamous cell carcinoma [Fatal]
  - Post transplant lymphoproliferative disorder [Fatal]
  - Opportunistic infection [Fatal]
  - Cerebral aspergillosis [Fatal]
